FAERS Safety Report 6619072-9 (Version None)
Quarter: 2010Q1

REPORT INFORMATION
  Report Type: 
  Country: None (occurrence: None)
  Receive Date: 20100308
  Receipt Date: 20091209
  Transmission Date: 20100710
  Serious: No
  Sender: FDA-Public Use
  Company Number: US-ALLERGAN-0916970US

PATIENT
  Sex: Female

DRUGS (2)
  1. ACZONE [Suspect]
     Indication: ACNE
     Dosage: UNK
     Route: 061
     Dates: start: 20091130
  2. DOXYCYCLINE [Concomitant]

REACTIONS (1)
  - BACK PAIN [None]
